FAERS Safety Report 4417541-3 (Version None)
Quarter: 2004Q2

REPORT INFORMATION
  Report Type: 
  Country: None (occurrence: None)
  Receive Date: 20040623
  Receipt Date: 20040311
  Transmission Date: 20050107
  Serious: Yes (Hospitalization)
  Sender: FDA-Public Use
  Company Number: PHEH2004US02940

PATIENT
  Age: 4 Year
  Sex: Male
  Weight: 17.2 kg

DRUGS (3)
  1. TRILEPTAL [Suspect]
     Indication: EPILEPSY
     Dosage: 1 TSP, BID, ORAL; 1.5 TSP, QD, ORAL; 2 TSP, QHS, ORAL
     Route: 048
     Dates: end: 20040201
  2. TRILEPTAL [Suspect]
     Indication: EPILEPSY
     Dosage: 1 TSP, BID, ORAL; 1.5 TSP, QD, ORAL; 2 TSP, QHS, ORAL
     Route: 048
     Dates: start: 20040201
  3. TRILEPTAL [Suspect]
     Indication: EPILEPSY
     Dosage: 1 TSP, BID, ORAL; 1.5 TSP, QD, ORAL; 2 TSP, QHS, ORAL
     Route: 048
     Dates: start: 20040201

REACTIONS (1)
  - CONVULSION [None]
